FAERS Safety Report 8382449-8 (Version None)
Quarter: 2012Q2

REPORT INFORMATION
  Report Type: 
  Country: None (occurrence: None)
  Receive Date: 20120524
  Receipt Date: 20120521
  Transmission Date: 20120825
  Serious: Yes (Hospitalization, Other)
  Sender: FDA-Public Use
  Company Number: PHHY2012AR034962

PATIENT
  Sex: Female

DRUGS (1)
  1. DIOVAN [Suspect]
     Indication: HYPERTENSION
     Dosage: 160 MG, DAILY

REACTIONS (7)
  - MEMORY IMPAIRMENT [None]
  - FALL [None]
  - EYE HAEMORRHAGE [None]
  - VISUAL ACUITY REDUCED [None]
  - WRIST FRACTURE [None]
  - GLAUCOMA [None]
  - HEARING IMPAIRED [None]
